FAERS Safety Report 6599863-3 (Version None)
Quarter: 2010Q1

REPORT INFORMATION
  Report Type: 
  Country: None (occurrence: None)
  Receive Date: 20100224
  Receipt Date: 20100217
  Transmission Date: 20100710
  Serious: Yes (Hospitalization)
  Sender: FDA-Public Use
  Company Number: FR-JNJFOC-20091009134

PATIENT
  Age: 65 Year
  Sex: Female

DRUGS (5)
  1. REMICADE [Suspect]
     Indication: SAPHO SYNDROME
     Route: 042
     Dates: start: 20090603, end: 20090715
  2. REMICADE [Suspect]
     Route: 042
     Dates: start: 20090603, end: 20090715
  3. REMICADE [Suspect]
     Route: 042
     Dates: start: 20090603, end: 20090715
  4. LEVOTHYROX [Suspect]
     Indication: DRUG USE FOR UNKNOWN INDICATION
     Route: 048
  5. EUPRESSYL [Suspect]
     Indication: DRUG USE FOR UNKNOWN INDICATION
     Route: 048

REACTIONS (1)
  - TUBERCULOSIS [None]
